FAERS Safety Report 6615793-2 (Version None)
Quarter: 2010Q1

REPORT INFORMATION
  Report Type: 
  Country: None (occurrence: None)
  Receive Date: 20100305
  Receipt Date: 20100224
  Transmission Date: 20100710
  Serious: Yes (Hospitalization, Other)
  Sender: FDA-Public Use
  Company Number: BR-ABBOTT-09P-020-0605139-00

PATIENT
  Sex: Female
  Weight: 80 kg

DRUGS (5)
  1. HUMIRA [Suspect]
     Indication: RHEUMATOID ARTHRITIS
     Route: 058
     Dates: start: 20070601, end: 20090215
  2. HYDROXYCHLOROQUINE SULFATE [Concomitant]
     Indication: RHEUMATOID ARTHRITIS
     Route: 048
  3. RANITIDINE [Concomitant]
     Indication: GASTRIC DISORDER
     Route: 048
  4. PARACETAMOL [Concomitant]
     Indication: PAIN
     Route: 048
  5. MAGISTRAL FORMULA [Concomitant]
     Indication: RHEUMATOID ARTHRITIS
     Dosage: NIMESULIDE 100MG/ PREDNISONE 5MG/ CHLOROQUINE 400MG/ KETOROLAC
     Route: 048

REACTIONS (7)
  - ARTHRALGIA [None]
  - BONE DISORDER [None]
  - DRUG INEFFECTIVE [None]
  - JOINT SWELLING [None]
  - MOBILITY DECREASED [None]
  - NODULE [None]
  - OEDEMA PERIPHERAL [None]
